FAERS Safety Report 23750886 (Version 1)
Quarter: 2024Q2

REPORT INFORMATION
  Report Type: Spontaneous
  Country: EG (occurrence: EG)
  Receive Date: 20240417
  Receipt Date: 20240417
  Transmission Date: 20240716
  Serious: Yes (Other)
  Sender: FDA-Public Use
  Company Number: EG-JNJFOC-20240429911

PATIENT
  Sex: Male

DRUGS (1)
  1. PONVORY [Suspect]
     Active Substance: PONESIMOD
     Indication: Multiple sclerosis
     Route: 048

REACTIONS (1)
  - Respiratory distress [Unknown]
